FAERS Safety Report 6838265-9 (Version None)
Quarter: 2010Q3

REPORT INFORMATION
  Report Type: 
  Country: None (occurrence: None)
  Receive Date: 20100713
  Receipt Date: 20070607
  Transmission Date: 20110219
  Serious: No
  Sender: FDA-Public Use
  Company Number: US-PFIZER INC-2007047529

PATIENT
  Sex: Male
  Weight: 102.72 kg

DRUGS (9)
  1. CHANTIX [Suspect]
     Indication: SMOKING CESSATION THERAPY
     Dates: start: 20070531
  2. ATENOLOL [Concomitant]
     Indication: HYPERTENSION
  3. HYDROCHLOROTHIAZIDE [Concomitant]
  4. GEMFIBROZIL [Concomitant]
     Indication: BLOOD CHOLESTEROL
  5. PREVACID [Concomitant]
     Indication: GASTROOESOPHAGEAL REFLUX DISEASE
  6. HYDROMORPHONE [Concomitant]
     Indication: ARTHRALGIA
  7. LIBRAX [Concomitant]
  8. RESTORIL [Concomitant]
     Indication: SLEEP DISORDER
  9. AMBIEN [Concomitant]
     Indication: SLEEP DISORDER

REACTIONS (2)
  - NAUSEA [None]
  - VOMITING [None]
